FAERS Safety Report 5017458-X (Version None)
Quarter: 2006Q2

REPORT INFORMATION
  Report Type: 
  Country: None (occurrence: None)
  Receive Date: 20060414
  Receipt Date: 20060223
  Transmission Date: 20061013
  Serious: No
  Sender: FDA-Public Use
  Company Number: 2006SP000930

PATIENT
  Age: 61 Year
  Sex: Female
  Weight: 66.6788 kg

DRUGS (4)
  1. LUNESTA [Suspect]
     Indication: INSOMNIA
     Dosage: 2MG, PRN; ORAL
     Route: 048
     Dates: start: 20060221
  2. CRESTOR [Concomitant]
  3. ZESTRIL [Concomitant]
  4. AMBIEN [Concomitant]

REACTIONS (2)
  - DYSGEUSIA [None]
  - INITIAL INSOMNIA [None]
